FAERS Safety Report 20204371 (Version 1)
Quarter: 2021Q4

REPORT INFORMATION
  Report Type: Spontaneous
  Country: US (occurrence: None)
  Receive Date: 20211220
  Receipt Date: 20211220
  Transmission Date: 20220304
  Serious: Yes (Hospitalization, Other)
  Sender: FDA-Public Use
  Company Number: US-Hikma Pharmaceuticals USA Inc.-US-H14001-21-05361

PATIENT
  Age: 40 Year
  Sex: Male

DRUGS (5)
  1. TESTOSTERONE [Suspect]
     Active Substance: TESTOSTERONE
     Indication: Product used for unknown indication
     Dosage: UNKNOWN
  2. NANDROLONE [Suspect]
     Active Substance: NANDROLONE
     Indication: Product used for unknown indication
     Dosage: UNKNOWN
     Route: 065
  3. METHANDROSTENOLONE [Suspect]
     Active Substance: METHANDROSTENOLONE
     Indication: Product used for unknown indication
     Dosage: UNKNOWN
  4. FLUTICASONE [Concomitant]
     Active Substance: FLUTICASONE
     Indication: Cough
     Dosage: UNKNOWN
  5. ALBUTEROL\IPRATROPIUM [Concomitant]
     Active Substance: ALBUTEROL\IPRATROPIUM
     Indication: Cough
     Dosage: UNKNOWN

REACTIONS (4)
  - Drug-induced liver injury [Unknown]
  - Nephropathy [Unknown]
  - Acute kidney injury [Unknown]
  - Hyperbilirubinaemia [Recovering/Resolving]
